FAERS Safety Report 5630366-6 (Version None)
Quarter: 2008Q1

REPORT INFORMATION
  Report Type: 
  Country: None (occurrence: None)
  Receive Date: 20080212
  Receipt Date: 20080205
  Transmission Date: 20080703
  Serious: Yes (Death)
  Sender: FDA-Public Use
  Company Number: 163-21880-08020298

PATIENT
  Age: 83 Year
  Sex: Male

DRUGS (3)
  1. REVLIMID [Suspect]
     Indication: MULTIPLE MYELOMA
     Dosage: 10 MG, 1 IN 1 D, ORAL; 25 MG, 1 IN 1 D, ORAL ; 10 MG, 1 IN 1 D ORAL
     Route: 048
     Dates: start: 20061208, end: 20070101
  2. REVLIMID [Suspect]
     Indication: MULTIPLE MYELOMA
     Dosage: 10 MG, 1 IN 1 D, ORAL; 25 MG, 1 IN 1 D, ORAL ; 10 MG, 1 IN 1 D ORAL
     Route: 048
     Dates: start: 20070130, end: 20070501
  3. REVLIMID [Suspect]
     Indication: MULTIPLE MYELOMA
     Dosage: 10 MG, 1 IN 1 D, ORAL; 25 MG, 1 IN 1 D, ORAL ; 10 MG, 1 IN 1 D ORAL
     Route: 048
     Dates: start: 20070621

REACTIONS (3)
  - CARDIAC FAILURE CONGESTIVE [None]
  - DISEASE PROGRESSION [None]
  - MULTIPLE MYELOMA [None]
